FAERS Safety Report 14188365 (Version 1)
Quarter: 2017Q4

REPORT INFORMATION
  Report Type: Spontaneous
  Country: US (occurrence: US)
  Receive Date: 20171114
  Receipt Date: 20171114
  Transmission Date: 20180321
  Serious: No
  Sender: FDA-Public Use
  Company Number: US-BAUSCH-BL-2017-019854

PATIENT
  Age: 48 Year
  Sex: Female
  Weight: 81.72 kg

DRUGS (4)
  1. OPCON-A [Suspect]
     Active Substance: NAPHAZOLINE HYDROCHLORIDE\PHENIRAMINE MALEATE
     Indication: EYE ALLERGY
     Dosage: 1 DROP IN BOTH EYES ONCE DAILY
     Route: 047
     Dates: start: 20170621
  2. SYNTHROID [Concomitant]
     Active Substance: LEVOTHYROXINE SODIUM
     Indication: THYROID DISORDER
     Dosage: STARTED MANY YEARS AGO
     Route: 048
  3. VITAMIN D [Concomitant]
     Active Substance: CHOLECALCIFEROL
     Indication: VITAMIN SUPPLEMENTATION
     Dosage: STARTED 6 MONTHS AGO
     Route: 048
     Dates: start: 201612
  4. NORCO [Concomitant]
     Active Substance: ACETAMINOPHEN\HYDROCODONE BITARTRATE
     Indication: PAIN
     Dosage: STARTED 6 MONTHS AGO?TAKEN AS NEEDED
     Route: 048
     Dates: start: 201612

REACTIONS (1)
  - Eye irritation [Recovered/Resolved]

NARRATIVE: CASE EVENT DATE: 20170621
